FAERS Safety Report 9829739 (Version 1)
Quarter: 2014Q1

REPORT INFORMATION
  Report Type: Other
  Country: DE (occurrence: DE)
  Receive Date: 20140120
  Receipt Date: 20140120
  Transmission Date: 20141002
  Serious: Yes (Hospitalization)
  Sender: FDA-Public Use
  Company Number: DE-BRISTOL-MYERS SQUIBB COMPANY-19990910

PATIENT
  Age: 35 Year
  Sex: Female

DRUGS (3)
  1. TRIAMCINOLONE ACE INJ [Suspect]
     Indication: LUMBAR SPINAL STENOSIS
     Dates: start: 201206
  2. RITONAVIR [Interacting]
     Indication: HIV INFECTION
     Dates: start: 200507
  3. BUPIVACAINE [Concomitant]
     Indication: LUMBAR SPINAL STENOSIS
     Dates: start: 201206

REACTIONS (3)
  - Cushing^s syndrome [Unknown]
  - Adrenal suppression [Unknown]
  - Drug interaction [Unknown]
